FAERS Safety Report 17347339 (Version 1)
Quarter: 2020Q1

REPORT INFORMATION
  Report Type: Report from Study
  Country: US (occurrence: US)
  Receive Date: 20200129
  Receipt Date: 20200129
  Transmission Date: 20200409
  Serious: No
  Sender: FDA-Public Use
  Company Number: US-EXELIXIS-CABO-19022131

PATIENT
  Age: 70 Year
  Sex: Male

DRUGS (4)
  1. CABOMETYX [Suspect]
     Active Substance: CABOZANTINIB S-MALATE
     Dosage: 40 MG, QD(Q AM W/O FOOD)
     Dates: start: 20190815
  2. CABOMETYX [Suspect]
     Active Substance: CABOZANTINIB S-MALATE
     Dosage: 60 MG, QD
     Dates: start: 20190719, end: 20190801
  3. LEVOTHYROXINE. [Concomitant]
     Active Substance: LEVOTHYROXINE
  4. CABOMETYX [Suspect]
     Active Substance: CABOZANTINIB S-MALATE
     Indication: RENAL CANCER
     Dosage: 60 MG, QD
     Dates: start: 20190621, end: 20190715

REACTIONS (13)
  - Hypertension [Recovered/Resolved]
  - Dry mouth [Not Recovered/Not Resolved]
  - Rhinorrhoea [Recovered/Resolved]
  - Fatigue [Unknown]
  - Stomatitis [Not Recovered/Not Resolved]
  - Tongue ulceration [Not Recovered/Not Resolved]
  - Decreased activity [Unknown]
  - Diarrhoea [Unknown]
  - Productive cough [Not Recovered/Not Resolved]
  - Constipation [Recovered/Resolved]
  - Weight decreased [Recovering/Resolving]
  - Abdominal discomfort [Recovered/Resolved]
  - Dysphonia [Not Recovered/Not Resolved]

NARRATIVE: CASE EVENT DATE: 201906
